FAERS Safety Report 5273974-7 (Version None)
Quarter: 2007Q1

REPORT INFORMATION
  Report Type: 
  Country: None (occurrence: None)
  Receive Date: 20070323
  Receipt Date: 20070320
  Transmission Date: 20070707
  Serious: Yes (Life-Threatening, Hospitalization)
  Sender: FDA-Public Use
  Company Number: US-GLAXOSMITHKLINE-A0644147A

PATIENT
  Age: 63 Year
  Sex: Female
  Weight: 80.9 kg

DRUGS (6)
  1. LAPATINIB [Suspect]
     Dosage: 1250MG PER DAY
     Route: 048
     Dates: start: 20070126
  2. CAPECITABINE [Suspect]
     Dosage: 3900MG PER DAY
     Route: 048
     Dates: start: 20070126
  3. LEVOTHYROXINE SODIUM [Concomitant]
  4. FLEXERIL [Concomitant]
  5. ATENOLOL [Concomitant]
  6. AMITRIPTYLINE HCL [Concomitant]

REACTIONS (4)
  - ASTHENIA [None]
  - DEHYDRATION [None]
  - DIARRHOEA [None]
  - GASTROENTERITIS [None]
